FAERS Safety Report 13349023 (Version 2)
Quarter: 2018Q1

REPORT INFORMATION
  Report Type: Spontaneous
  Country: IT (occurrence: IT)
  Receive Date: 20170320
  Receipt Date: 20180215
  Transmission Date: 20180508
  Serious: Yes (Other)
  Sender: FDA-Public Use
  Company Number: IT-009507513-1703ITA006523

PATIENT
  Age: 68 Year
  Sex: Female

DRUGS (2)
  1. MIRTAZAPINE. [Suspect]
     Active Substance: MIRTAZAPINE
     Indication: INTENTIONAL SELF-INJURY
     Dosage: 30 DOSE UNIT TOTAL
     Route: 048
     Dates: start: 20151021, end: 20151021
  2. TAVOR (LORAZEPAM) [Suspect]
     Active Substance: LORAZEPAM
     Indication: INTENTIONAL SELF-INJURY
     Dosage: 20 DOSE UNIT TOTAL
     Route: 048
     Dates: start: 20151021, end: 20151021

REACTIONS (2)
  - Sopor [Recovering/Resolving]
  - Drug abuse [Recovering/Resolving]

NARRATIVE: CASE EVENT DATE: 20151021
